FAERS Safety Report 9579529 (Version 2)
Quarter: 2013Q4

REPORT INFORMATION
  Report Type: Spontaneous
  Country: US (occurrence: US)
  Receive Date: 20131002
  Receipt Date: 20131002
  Transmission Date: 20140711
  Serious: Yes (Hospitalization)
  Sender: FDA-Public Use
  Company Number: US-JNJFOC-20130713373

PATIENT
  Sex: Female
  Weight: 52.16 kg

DRUGS (30)
  1. CHILDRENS BENADRYL-D ALLERGY AND SINUS [Suspect]
     Indication: DYSPNOEA
     Dosage: TEASPOON AND HALF-TABLESPOON
     Route: 048
     Dates: start: 20070501
  2. CHILDRENS BENADRYL-D ALLERGY AND SINUS [Suspect]
     Indication: PRESYNCOPE
     Dosage: TEASPOON AND HALF-TABLESPOON
     Route: 048
     Dates: start: 20070501
  3. ZYRETEC [Suspect]
     Indication: RHINORRHOEA
     Route: 048
     Dates: start: 20120710
  4. ZYRTEC [Suspect]
     Indication: OROPHARYNGEAL PAIN
     Route: 048
     Dates: start: 20120710
  5. ZYRTEC [Suspect]
     Indication: VOMITING
     Route: 048
     Dates: start: 20120710
  6. ZYRTEC [Suspect]
     Indication: HYPERHIDROSIS
     Route: 048
     Dates: start: 20120710
  7. ZYRTEC [Suspect]
     Indication: ABDOMINAL DISCOMFORT
     Route: 048
     Dates: start: 20120710
  8. ZYRTEC [Suspect]
     Indication: DIZZINESS
     Route: 048
     Dates: start: 20120710
  9. ZYRTEC [Suspect]
     Indication: FEELING HOT
     Route: 048
     Dates: start: 20120710
  10. ZYRTEC [Suspect]
     Indication: HEADACHE
     Route: 048
     Dates: start: 20120710
  11. ZYRTEC [Suspect]
     Indication: DYSPNOEA
     Route: 048
     Dates: start: 20120710
  12. ZYRTEC [Suspect]
     Indication: PRESYNCOPE
     Route: 048
     Dates: start: 20120710
  13. BENADRYL UNSPECIFIED [Suspect]
     Indication: RHINORRHOEA
     Route: 048
  14. BENADRYL UNSPECIFIED [Suspect]
     Indication: OROPHARYNGEAL PAIN
     Route: 048
  15. BENADRYL UNSPECIFIED [Suspect]
     Indication: VOMITING
     Route: 048
  16. BENADRYL UNSPECIFIED [Suspect]
     Indication: HYPERHIDROSIS
     Route: 048
  17. BENADRYL UNSPECIFIED [Suspect]
     Indication: ABDOMINAL DISCOMFORT
     Route: 048
  18. BENADRYL UNSPECIFIED [Suspect]
     Indication: DIZZINESS
     Route: 048
  19. BENADRYL UNSPECIFIED [Suspect]
     Indication: FEELING HOT
     Route: 048
  20. BENADRYL UNSPECIFIED [Suspect]
     Indication: HEADACHE
     Route: 048
  21. BENADRYL UNSPECIFIED [Suspect]
     Indication: DYSPNOEA
     Route: 048
  22. BENADRYL UNSPECIFIED [Suspect]
     Indication: PRESYNCOPE
     Route: 048
  23. CHILDRENS BENADRYL-D ALLERGY AND SINUS [Suspect]
     Indication: RHINORRHOEA
     Dosage: TEASPOON AND HALF-TABLESPOON
     Route: 048
     Dates: start: 20070501
  24. CHILDRENS BENADRYL-D ALLERGY AND SINUS [Suspect]
     Indication: OROPHARYNGEAL PAIN
     Dosage: TEASPOON AND HALF-TABLESPOON
     Route: 048
     Dates: start: 20070501
  25. CHILDRENS BENADRYL-D ALLERGY AND SINUS [Suspect]
     Indication: VOMITING
     Dosage: TEASPOON AND HALF-TABLESPOON
     Route: 048
     Dates: start: 20070501
  26. CHILDRENS BENADRYL-D ALLERGY AND SINUS [Suspect]
     Indication: HYPERHIDROSIS
     Dosage: TEASPOON AND HALF-TABLESPOON
     Route: 048
     Dates: start: 20070501
  27. CHILDRENS BENADRYL-D ALLERGY AND SINUS [Suspect]
     Indication: ABDOMINAL DISCOMFORT
     Dosage: TEASPOON AND HALF-TABLESPOON
     Route: 048
     Dates: start: 20070501
  28. CHILDRENS BENADRYL-D ALLERGY AND SINUS [Suspect]
     Indication: DIZZINESS
     Dosage: TEASPOON AND HALF-TABLESPOON
     Route: 048
     Dates: start: 20070501
  29. CHILDRENS BENADRYL-D ALLERGY AND SINUS [Suspect]
     Indication: FEELING HOT
     Dosage: TEASPOON AND HALF-TABLESPOON
     Route: 048
     Dates: start: 20070501
  30. CHILDRENS BENADRYL-D ALLERGY AND SINUS [Suspect]
     Indication: HEADACHE
     Dosage: TEASPOON AND HALF-TABLESPOON
     Route: 048
     Dates: start: 20070501

REACTIONS (5)
  - Condition aggravated [Recovering/Resolving]
  - Aphagia [Recovering/Resolving]
  - Weight decreased [Recovered/Resolved]
  - Drug ineffective [Recovering/Resolving]
  - Incorrect dose administered [Unknown]
